FAERS Safety Report 4416897-5 (Version None)
Quarter: 2004Q3

REPORT INFORMATION
  Report Type: 
  Country: None (occurrence: None)
  Receive Date: 20040806
  Receipt Date: 20040527
  Transmission Date: 20050211
  Serious: Yes (Death)
  Sender: FDA-Public Use
  Company Number: FR-ROCHE-369126

PATIENT
  Age: 70 Year
  Sex: Female

DRUGS (8)
  1. XELODA [Suspect]
     Route: 048
     Dates: start: 20040505, end: 20040518
  2. FORLAX [Concomitant]
     Route: 048
     Dates: start: 20040515
  3. IMOVANE [Concomitant]
     Route: 048
  4. CORDARONE [Concomitant]
     Route: 048
  5. LASIX [Concomitant]
     Route: 048
  6. BISOPROLOL FUMARATE [Concomitant]
     Route: 048
  7. PREVISCAN [Concomitant]
  8. FUROSEMIDE [Concomitant]

REACTIONS (4)
  - ACUTE PULMONARY OEDEMA [None]
  - DEATH [None]
  - DIARRHOEA [None]
  - RALES [None]
